FAERS Safety Report 7860027-4 (Version None)
Quarter: 2011Q4

REPORT INFORMATION
  Report Type: 
  Country: None (occurrence: None)
  Receive Date: 20111025
  Receipt Date: 20111012
  Transmission Date: 20120403
  Serious: Yes (Hospitalization, Other)
  Sender: FDA-Public Use
  Company Number: 2011P1009541

PATIENT
  Age: 56 Year
  Sex: Male
  Weight: 74.1178 kg

DRUGS (5)
  1. ETHAMBUTOL HCL TABLETS USP 400MG [Suspect]
     Indication: PULMONARY TUBERCULOSIS
     Dosage: 800 MG; QD;
     Dates: start: 20110119
  2. ISONIAZID [Suspect]
     Indication: PULMONARY TUBERCULOSIS
     Dosage: 300 MG;QD;
     Dates: start: 20110119
  3. AXITINIB [Suspect]
     Indication: METASTATIC RENAL CELL CARCINOMA
     Dosage: 5 MG;BID; 2MG;BID
     Dates: start: 20100914
  4. AXITINIB [Suspect]
     Indication: METASTATIC RENAL CELL CARCINOMA
     Dosage: 5 MG;BID; 2MG;BID
     Dates: start: 20110428
  5. PYRAZINAMIDE [Suspect]
     Indication: PULMONARY TUBERCULOSIS
     Dosage: 500 MG;TID
     Dates: start: 20110119

REACTIONS (4)
  - VISUAL ACUITY REDUCED [None]
  - BLOOD THYROID STIMULATING HORMONE INCREASED [None]
  - PEPTIC ULCER [None]
  - VOMITING [None]
